FAERS Safety Report 6671318-7 (Version None)
Quarter: 2010Q2

REPORT INFORMATION
  Report Type: 
  Country: None (occurrence: None)
  Receive Date: 20100407
  Receipt Date: 20100330
  Transmission Date: 20101027
  Serious: No
  Sender: FDA-Public Use
  Company Number: US-B.I. PHARMACEUTICALS,INC./RIDGEFIELD-2010-BP-03680BP

PATIENT
  Age: 52 Year
  Sex: Female

DRUGS (1)
  1. MOBIC [Suspect]
     Indication: MUSCULOSKELETAL PAIN
     Dosage: 7.5 MG
     Route: 048
     Dates: start: 20091201

REACTIONS (1)
  - DRUG INEFFECTIVE [None]
